FAERS Safety Report 7089955-7 (Version None)
Quarter: 2010Q4

REPORT INFORMATION
  Report Type: 
  Country: None (occurrence: None)
  Receive Date: 20101108
  Receipt Date: 20101022
  Transmission Date: 20110411
  Serious: Yes (Life-Threatening, Hospitalization)
  Sender: FDA-Public Use
  Company Number: SE-AMGEN-SWECT2010001459

PATIENT

DRUGS (1)
  1. ENBREL [Suspect]
     Indication: RHEUMATOID ARTHRITIS
     Dosage: 50 MG, QWK
     Route: 058
     Dates: start: 20070125, end: 20100601

REACTIONS (4)
  - DECUBITUS ULCER [None]
  - SEPTIC ARTHRITIS STAPHYLOCOCCAL [None]
  - SUBCUTANEOUS ABSCESS [None]
  - WEIGHT DECREASED [None]
